FAERS Safety Report 25150070 (Version 1)
Quarter: 2025Q2

REPORT INFORMATION
  Report Type: Report from Study
  Country: KR (occurrence: KR)
  Receive Date: 20250402
  Receipt Date: 20250402
  Transmission Date: 20250716
  Serious: Yes (Hospitalization)
  Sender: TAKEDA
  Company Number: KR-TAKEDA-2025TUS032292

PATIENT
  Age: 48 Year
  Sex: Female
  Weight: 40 kg

DRUGS (15)
  1. VEDOLIZUMAB [Suspect]
     Active Substance: VEDOLIZUMAB
     Indication: Product used for unknown indication
     Dosage: 108 MILLIGRAM, Q2WEEKS
     Dates: start: 20231113, end: 20240219
  2. VEDOLIZUMAB [Suspect]
     Active Substance: VEDOLIZUMAB
  3. REBAMIPIDE [Concomitant]
     Active Substance: REBAMIPIDE
     Indication: Gastritis prophylaxis
     Dosage: 100 MILLIGRAM, BID
     Dates: start: 20231110
  4. NUCYNTA [Concomitant]
     Active Substance: TAPENTADOL HYDROCHLORIDE
     Indication: Adverse event
     Dosage: 100 MILLIGRAM, BID
     Dates: start: 20230311, end: 20240325
  5. Harmonilan [Concomitant]
     Indication: Vitamin supplementation
     Dosage: 200 MILLILITER, TID
     Dates: start: 20231101, end: 20231202
  6. Omed [Concomitant]
     Indication: Gastritis prophylaxis
     Dosage: UNK UNK, BID
     Dates: start: 20231113, end: 20231127
  7. Recomid sr [Concomitant]
     Indication: Gastritis prophylaxis
     Dosage: 15 MILLIGRAM, BID
     Dates: start: 20231227, end: 20240102
  8. PENTASA [Concomitant]
     Active Substance: MESALAMINE
     Dosage: 2 GRAM, BID
     Dates: start: 20230717
  9. ITOPRIDE [Concomitant]
     Active Substance: ITOPRIDE
     Indication: Gastritis prophylaxis
     Dosage: 50 MILLIGRAM, BID
     Dates: start: 20231227, end: 20240102
  10. HUMAN PLASMA [Concomitant]
     Active Substance: HUMAN PLASMA
     Indication: Adverse event
     Dates: start: 20240110, end: 20240110
  11. TRAMADOL HYDROCHLORIDE [Concomitant]
     Active Substance: TRAMADOL HYDROCHLORIDE
     Indication: Adverse event
     Dosage: UNK, BID
     Dates: start: 20240110, end: 20240110
  12. CORTISOL [Concomitant]
     Active Substance: HYDROCORTISONE
  13. Anytal [Concomitant]
     Dosage: UNK UNK, BID
     Dates: start: 20231102
  14. ACETAMINOPHEN\TRAMADOL HYDROCHLORIDE [Concomitant]
     Active Substance: ACETAMINOPHEN\TRAMADOL HYDROCHLORIDE
     Dosage: UNK UNK, BID
     Dates: start: 20231113, end: 20231127
  15. Solondo [Concomitant]
     Dosage: 10 MILLIGRAM, BID
     Dates: start: 20231227, end: 20240110

REACTIONS (1)
  - Abdominal pain [Not Recovered/Not Resolved]

NARRATIVE: CASE EVENT DATE: 20240110
